FAERS Safety Report 12512275 (Version 1)
Quarter: 2016Q2

REPORT INFORMATION
  Report Type: Spontaneous
  Country: US (occurrence: None)
  Receive Date: 20160629
  Receipt Date: 20160629
  Transmission Date: 20160815
  Serious: No
  Sender: FDA-Public Use
  Company Number: None

PATIENT
  Age: 75 Year
  Sex: Female

DRUGS (1)
  1. REPATHA [Suspect]
     Active Substance: EVOLOCUMAB
     Indication: HYPERCHOLESTEROLAEMIA
     Dosage: 140MG/ML PEN 2 PK  140 QOW
     Route: 058
     Dates: start: 20160308

REACTIONS (1)
  - Myalgia [None]

NARRATIVE: CASE EVENT DATE: 2016
